FAERS Safety Report 19477079 (Version 1)
Quarter: 2021Q2

REPORT INFORMATION
  Report Type: Spontaneous
  Country: CA (occurrence: CA)
  Receive Date: 20210630
  Receipt Date: 20210630
  Transmission Date: 20210717
  Serious: Yes (Other)
  Sender: FDA-Public Use
  Company Number: CA-GLAXOSMITHKLINE-CA2021AMR137616

PATIENT
  Age: 49 Year
  Sex: Female
  Weight: 113 kg

DRUGS (3)
  1. DULOXETINE. [Suspect]
     Active Substance: DULOXETINE
     Indication: PRODUCT USED FOR UNKNOWN INDICATION
     Dosage: 30 MG, 1D
  2. BENLYSTA [Suspect]
     Active Substance: BELIMUMAB
     Dosage: 1080 MG, Z,EVERY 4 WEEKS
     Route: 042
     Dates: start: 20210527
  3. BENLYSTA [Suspect]
     Active Substance: BELIMUMAB
     Indication: SYSTEMIC LUPUS ERYTHEMATOSUS
     Dosage: 10 MG/KG, Z,EVERY 4 WEEKS
     Route: 042
     Dates: start: 20160516

REACTIONS (13)
  - Blindness [Unknown]
  - Headache [Unknown]
  - Asthenia [Unknown]
  - Hypoaesthesia [Unknown]
  - Pain in extremity [Recovered/Resolved]
  - Vomiting [Unknown]
  - Nausea [Unknown]
  - Discomfort [Unknown]
  - Pain [Recovered/Resolved]
  - Fatigue [Unknown]
  - Chest pain [Recovered/Resolved]
  - Dyspnoea [Unknown]
  - Abdominal pain [Recovered/Resolved]

NARRATIVE: CASE EVENT DATE: 202106
